FAERS Safety Report 13781040 (Version 1)
Quarter: 2017Q3

REPORT INFORMATION
  Report Type: Report from Study
  Country: None (occurrence: BR)
  Receive Date: 20170724
  Receipt Date: 20170724
  Transmission Date: 20171127
  Serious: Yes (Other)
  Sender: FDA-Public Use
  Company Number: BR-ABBVIE-17K-020-2047215-00

PATIENT
  Age: 41 Year
  Sex: Female
  Weight: 78 kg

DRUGS (1)
  1. HUMIRA [Suspect]
     Active Substance: ADALIMUMAB
     Indication: RHEUMATOID ARTHRITIS
     Route: 058
     Dates: start: 20130429, end: 201609

REACTIONS (3)
  - Systemic lupus erythematosus [Not Recovered/Not Resolved]
  - Lupus nephritis [Unknown]
  - Inflammation [Unknown]

NARRATIVE: CASE EVENT DATE: 201608
